FAERS Safety Report 16915846 (Version 13)
Quarter: 2020Q4

REPORT INFORMATION
  Report Type: Report from Study
  Country: IT (occurrence: IT)
  Receive Date: 20191014
  Receipt Date: 20201127
  Transmission Date: 20210113
  Serious: Yes (Life-Threatening, Hospitalization)
  Sender: FDA-Public Use
  Company Number: IT-SA-2019SA277039

PATIENT

DRUGS (8)
  1. KONAKION [Concomitant]
     Active Substance: PHYTONADIONE
     Indication: CHOLECYSTITIS INFECTIVE
  2. DIBASE [Concomitant]
     Active Substance: CHOLECALCIFEROL
     Indication: VITAMIN D DEFICIENCY
     Dosage: 25 GTT DROPS, QW
     Route: 048
     Dates: start: 2020
  3. ANTRA [OMEPRAZOLE] [Concomitant]
     Active Substance: OMEPRAZOLE
     Indication: GASTROOESOPHAGEAL REFLUX PROPHYLAXIS
     Dosage: 40 MG, QD
     Route: 042
     Dates: start: 201908, end: 201908
  4. ALEMTUZUMAB [Suspect]
     Active Substance: ALEMTUZUMAB
     Dosage: UNK
     Route: 041
     Dates: start: 20180507
  5. ALEMTUZUMAB [Suspect]
     Active Substance: ALEMTUZUMAB
     Indication: RELAPSING-REMITTING MULTIPLE SCLEROSIS
     Dosage: UNK
     Route: 041
     Dates: start: 20190507
  6. PANTOPRAZOLE [Concomitant]
     Active Substance: PANTOPRAZOLE
     Indication: GASTRITIS PROPHYLAXIS
     Dosage: 40 MG, QD
     Route: 048
     Dates: start: 2015
  7. TARDYFER [Concomitant]
     Active Substance: FERROUS SULFATE
     Indication: MINERAL SUPPLEMENTATION
     Dosage: 80 MG, QD
     Route: 048
     Dates: start: 201908
  8. KONAKION [Concomitant]
     Active Substance: PHYTONADIONE
     Indication: INTERNATIONAL NORMALISED RATIO ABNORMAL
     Dosage: 2.5 MG, PRN
     Route: 048
     Dates: start: 201907, end: 201908

REACTIONS (10)
  - Sepsis [Recovered/Resolved]
  - Erysipelas [Recovered/Resolved]
  - Erysipelas [Not Recovered/Not Resolved]
  - Haematuria [Recovered/Resolved]
  - Anaemia [Recovered/Resolved]
  - Cholecystitis infective [Recovered/Resolved]
  - Erysipelas [Recovered/Resolved]
  - Perihepatic abscess [Recovered/Resolved]
  - Pulmonary embolism [Recovered/Resolved]
  - Candida infection [Recovered/Resolved]

NARRATIVE: CASE EVENT DATE: 20190719
